FAERS Safety Report 7251572-3 (Version None)
Quarter: 2011Q1

REPORT INFORMATION
  Report Type: 
  Country: None (occurrence: None)
  Receive Date: 20110128
  Receipt Date: 20101214
  Transmission Date: 20110831
  Serious: Yes (Other)
  Sender: FDA-Public Use
  Company Number: FR-ELI_LILLY_AND_COMPANY-FR201101006239

PATIENT
  Age: 63 Year
  Sex: Female

DRUGS (3)
  1. OPTRUMA [Suspect]
     Dosage: 1 D/F, UNK
  2. OPTRUMA [Suspect]
     Indication: OSTEOPOROSIS
     Dosage: 1 D/F, UNK
  3. DEDROGYL [Concomitant]

REACTIONS (1)
  - BREAST CANCER [None]
